FAERS Safety Report 8383481 (Version 3)
Quarter: 2015Q1

REPORT INFORMATION
  Report Type: Report from Study
  Country: US (occurrence: US)
  Receive Date: 20120130
  Receipt Date: 20150211
  Transmission Date: 20150721
  Serious: Yes (Death, Hospitalization, Other)
  Sender: FDA-Public Use
  Company Number: US-ROCHE-1033930

PATIENT
  Sex: Female
  Weight: 136 kg

DRUGS (40)
  1. XOLAIR [Suspect]
     Active Substance: OMALIZUMAB
     Route: 058
     Dates: start: 20051220
  2. XOLAIR [Suspect]
     Active Substance: OMALIZUMAB
     Dosage: 150 MG RIGHT ARM, 150 MGH LEFT ARM
     Route: 058
     Dates: start: 20070928
  3. XOLAIR [Suspect]
     Active Substance: OMALIZUMAB
     Dosage: 150 MG RIGHT ARM, 150 MGH LEFT ARM
     Route: 058
     Dates: start: 20080509
  4. XOLAIR [Suspect]
     Active Substance: OMALIZUMAB
     Route: 058
     Dates: start: 20090518
  5. XOLAIR [Suspect]
     Active Substance: OMALIZUMAB
     Route: 058
     Dates: start: 20090603
  6. ZETIA [Concomitant]
     Active Substance: EZETIMIBE
     Route: 065
  7. CLONIDINE HCL [Concomitant]
     Active Substance: CLONIDINE HYDROCHLORIDE
     Route: 048
  8. METFORMIN HYDROCHLORIDE. [Concomitant]
     Active Substance: METFORMIN HYDROCHLORIDE
     Route: 048
  9. LISINOPRIL. [Concomitant]
     Active Substance: LISINOPRIL
     Route: 048
  10. XOLAIR [Suspect]
     Active Substance: OMALIZUMAB
     Route: 058
     Dates: start: 20071018
  11. XOLAIR [Suspect]
     Active Substance: OMALIZUMAB
     Dosage: 1.2 ML
     Route: 058
     Dates: start: 20090504
  12. XOLAIR [Suspect]
     Active Substance: OMALIZUMAB
     Route: 058
     Dates: start: 20090504
  13. XOLAIR [Suspect]
     Active Substance: OMALIZUMAB
     Route: 058
  14. SPIRIVA [Concomitant]
     Active Substance: TIOTROPIUM BROMIDE MONOHYDRATE
     Route: 065
  15. GLIPIZIDE. [Concomitant]
     Active Substance: GLIPIZIDE
     Dosage: ONE AND HALF TABLET
     Route: 048
  16. XOLAIR [Suspect]
     Active Substance: OMALIZUMAB
     Indication: ASTHMA
     Dosage: 150 MG RIGHT ARM, 150 MGH LEFT ARM
     Route: 058
     Dates: start: 20051209
  17. XOLAIR [Suspect]
     Active Substance: OMALIZUMAB
     Route: 058
     Dates: start: 20080612
  18. XOLAIR [Suspect]
     Active Substance: OMALIZUMAB
     Route: 058
     Dates: start: 20070110
  19. PREDNISONE. [Concomitant]
     Active Substance: PREDNISONE
     Route: 065
  20. SEPTRA [Concomitant]
     Active Substance: SULFAMETHOXAZOLE\TRIMETHOPRIM
  21. XOLAIR [Suspect]
     Active Substance: OMALIZUMAB
     Route: 058
     Dates: start: 20070730
  22. XOLAIR [Suspect]
     Active Substance: OMALIZUMAB
     Route: 058
     Dates: start: 20080320
  23. LANTUS [Concomitant]
     Active Substance: INSULIN GLARGINE
     Dosage: 100 UNIT/ML SQ
     Route: 065
  24. WARFARIN [Concomitant]
     Active Substance: WARFARIN
  25. XOLAIR [Suspect]
     Active Substance: OMALIZUMAB
     Route: 058
     Dates: start: 20071029
  26. XOLAIR [Suspect]
     Active Substance: OMALIZUMAB
     Dosage: 150 MG RIGHT ARM, 150 MGH LEFT ARM
     Route: 058
     Dates: start: 20090420
  27. XOLAIR [Suspect]
     Active Substance: OMALIZUMAB
     Route: 058
     Dates: start: 20090622
  28. AVANDIA [Concomitant]
     Active Substance: ROSIGLITAZONE MALEATE
     Route: 048
  29. CHLORTHALIDONE. [Concomitant]
     Active Substance: CHLORTHALIDONE
     Route: 048
  30. XOLAIR [Suspect]
     Active Substance: OMALIZUMAB
     Route: 058
     Dates: start: 20060105
  31. XOLAIR [Suspect]
     Active Substance: OMALIZUMAB
     Route: 058
     Dates: start: 20070914
  32. XOLAIR [Suspect]
     Active Substance: OMALIZUMAB
     Dosage: 150 MG RIGHT ARM, 150 MGH LEFT ARM
     Route: 058
     Dates: start: 20080523
  33. XOLAIR [Suspect]
     Active Substance: OMALIZUMAB
     Dosage: 150 MG RIGHT ARM, 150 MGH LEFT ARM
     Route: 058
     Dates: start: 20080916
  34. NASACORT AQ [Concomitant]
     Active Substance: TRIAMCINOLONE ACETONIDE
     Dosage: 2 SQUIRTS BOTH NOSTRILS
     Route: 065
  35. TRAMADOL HCL [Concomitant]
     Active Substance: TRAMADOL HYDROCHLORIDE
     Route: 048
  36. GABAPENTIN. [Concomitant]
     Active Substance: GABAPENTIN
     Route: 048
  37. XOLAIR [Suspect]
     Active Substance: OMALIZUMAB
     Route: 058
     Dates: start: 20070817
  38. PRILOSEC [Concomitant]
     Active Substance: OMEPRAZOLE MAGNESIUM
     Route: 065
  39. QVAR [Concomitant]
     Active Substance: BECLOMETHASONE DIPROPIONATE
     Dosage: INHALE 2 PUFFS
     Route: 011
  40. FERROUS FUMARATE [Concomitant]
     Active Substance: FERROUS FUMARATE
     Route: 048

REACTIONS (18)
  - Nasal congestion [Unknown]
  - Joint swelling [Unknown]
  - Malaise [Unknown]
  - Cellulitis [Recovered/Resolved]
  - Haemoptysis [Recovered/Resolved]
  - Pyrexia [Unknown]
  - Paranasal sinus discomfort [Unknown]
  - Respiratory failure [Fatal]
  - Epistaxis [Unknown]
  - Ear discomfort [Unknown]
  - Incision site complication [Unknown]
  - Lymph node pain [Unknown]
  - Respiratory tract infection [Unknown]
  - Drug dose omission [Unknown]
  - Dyspnoea [Unknown]
  - Thyroid cancer [Unknown]
  - Arthralgia [Unknown]
  - Wheezing [Unknown]

NARRATIVE: CASE EVENT DATE: 2009
